FAERS Safety Report 19154824 (Version 2)
Quarter: 2021Q2

REPORT INFORMATION
  Report Type: Report from Study
  Country: None (occurrence: US)
  Receive Date: 20210419
  Receipt Date: 20210506
  Transmission Date: 20210717
  Serious: Yes (Hospitalization, Other)
  Sender: FDA-Public Use
  Company Number: US-ABBVIE-21K-163-3860098-00

PATIENT
  Sex: Female
  Weight: 55.39 kg

DRUGS (1)
  1. MAVYRET [Suspect]
     Active Substance: GLECAPREVIR\PIBRENTASVIR
     Indication: CHRONIC HEPATITIS C
     Route: 048
     Dates: start: 20210223, end: 20210420

REACTIONS (3)
  - Lung neoplasm malignant [Unknown]
  - Chest discomfort [Unknown]
  - Pneumothorax [Unknown]

NARRATIVE: CASE EVENT DATE: 2021
